FAERS Safety Report 5086216-2 (Version None)
Quarter: 2006Q3

REPORT INFORMATION
  Report Type: 
  Country: None (occurrence: None)
  Receive Date: 20060823
  Receipt Date: 20060811
  Transmission Date: 20061208
  Serious: Yes (Death)
  Sender: FDA-Public Use
  Company Number: US-JNJFOC-20060802837

PATIENT
  Age: 55 Year
  Sex: Female

DRUGS (2)
  1. REOPRO [Suspect]
     Dosage: INFUSION
     Route: 042
  2. REOPRO [Suspect]
     Indication: ACUTE MYOCARDIAL INFARCTION
     Dosage: BOLUS DOSE
     Route: 042

REACTIONS (1)
  - HAEMORRHAGE [None]
